FAERS Safety Report 9456345 (Version 1)
Quarter: 2013Q3

REPORT INFORMATION
  Report Type: Spontaneous
  Country: FR (occurrence: FR)
  Receive Date: 20130813
  Receipt Date: 20130813
  Transmission Date: 20140515
  Serious: Yes (Death, Hospitalization)
  Sender: FDA-Public Use
  Company Number: FR-GLAXOSMITHKLINE-B0914130A

PATIENT
  Age: 31 Year
  Sex: Female

DRUGS (3)
  1. ZOVIRAX [Suspect]
     Indication: STOMATITIS
     Route: 048
     Dates: start: 20130626, end: 20130628
  2. NEO-MERCAZOLE [Suspect]
     Indication: HYPERTHYROIDISM
     Dosage: 20MG PER DAY
     Route: 048
     Dates: start: 20130409, end: 20130628
  3. EFFERALGAN CODEINE [Suspect]
     Indication: PAIN
     Route: 048
     Dates: start: 20130626, end: 20130628

REACTIONS (5)
  - Lymphopenia [Fatal]
  - Agranulocytosis [Fatal]
  - Multi-organ failure [Fatal]
  - Cardiac tamponade [Fatal]
  - Pseudomonas infection [Fatal]
